FAERS Safety Report 22376546 (Version 3)
Quarter: 2024Q1

REPORT INFORMATION
  Report Type: Report from Study
  Country: US (occurrence: US)
  Receive Date: 20230528
  Receipt Date: 20240207
  Transmission Date: 20240409
  Serious: No
  Sender: FDA-Public Use
  Company Number: US-002147023-NVSC2023US122115

PATIENT
  Sex: Female

DRUGS (1)
  1. KESIMPTA [Suspect]
     Active Substance: OFATUMUMAB
     Indication: Multiple sclerosis
     Dosage: 20 MG, QMO
     Route: 058
     Dates: start: 20230518

REACTIONS (7)
  - Pain [Unknown]
  - Chills [Unknown]
  - Fatigue [Unknown]
  - Restless legs syndrome [Recovered/Resolved]
  - Paraesthesia [Recovered/Resolved]
  - Restless legs syndrome [Unknown]
  - Eye disorder [Unknown]
